FAERS Safety Report 17717089 (Version 6)
Quarter: 2023Q1

REPORT INFORMATION
  Report Type: Spontaneous
  Country: US (occurrence: US)
  Receive Date: 20200428
  Receipt Date: 20230109
  Transmission Date: 20230418
  Serious: No
  Sender: FDA-Public Use
  Company Number: US-PFIZER INC-2020166043

PATIENT
  Age: 64 Year
  Sex: Female

DRUGS (1)
  1. XELJANZ [Suspect]
     Active Substance: TOFACITINIB CITRATE
     Dosage: 5 MG, UNK

REACTIONS (7)
  - Limb injury [Unknown]
  - Alopecia [Unknown]
  - Condition aggravated [Unknown]
  - Joint swelling [Unknown]
  - Joint swelling [Unknown]
  - Arthritis [Unknown]
  - Cognitive disorder [Unknown]
